FAERS Safety Report 16431333 (Version 1)
Quarter: 2019Q2

REPORT INFORMATION
  Report Type: Spontaneous
  Country: US (occurrence: US)
  Receive Date: 20190614
  Receipt Date: 20190614
  Transmission Date: 20190711
  Serious: No
  Sender: FDA-Public Use
  Company Number: US-AMAG PHARMACEUTICALS, INC.-AMAG201903156

PATIENT
  Sex: Female

DRUGS (4)
  1. BABY ASPIRIN [Concomitant]
     Active Substance: ASPIRIN
     Indication: THROMBOSIS
     Dosage: UNK
  2. INTRAROSA [Suspect]
     Active Substance: PRASTERONE
     Indication: VAGINAL PROLAPSE
  3. ELIQUIS [Concomitant]
     Active Substance: APIXABAN
     Indication: THROMBOSIS
     Dosage: 2.5, UNK
  4. INTRAROSA [Suspect]
     Active Substance: PRASTERONE
     Indication: VULVOVAGINAL DRYNESS
     Route: 067

REACTIONS (1)
  - Off label use [Unknown]
